FAERS Safety Report 5425106-X (Version None)
Quarter: 2007Q3

REPORT INFORMATION
  Report Type: 
  Country: None (occurrence: None)
  Receive Date: 20070824
  Receipt Date: 20070820
  Transmission Date: 20080115
  Serious: Yes (Life-Threatening, Hospitalization)
  Sender: FDA-Public Use
  Company Number: BE-MERCK-0707BEL00016

PATIENT
  Age: 82 Year
  Sex: Male
  Weight: 53 kg

DRUGS (3)
  1. MODURETIC 5-50 [Suspect]
     Indication: HYPERTENSION
     Route: 048
     Dates: start: 20030101
  2. TIMOLOL MALEATE [Concomitant]
     Indication: HYPERTENSION
     Route: 048
  3. ENALAPRIL MALEATE [Concomitant]
     Indication: HYPERTENSION
     Route: 048

REACTIONS (1)
  - CEREBROVASCULAR DISORDER [None]
